FAERS Safety Report 7054723-9 (Version None)
Quarter: 2010Q4

REPORT INFORMATION
  Report Type: 
  Country: None (occurrence: None)
  Receive Date: 20101015
  Receipt Date: 20101004
  Transmission Date: 20110411
  Serious: Yes (Death, Hospitalization)
  Sender: FDA-Public Use
  Company Number: 1000016627

PATIENT
  Age: 50 Year
  Sex: Male
  Weight: 72.7 kg

DRUGS (2)
  1. SAVELLA [Suspect]
     Indication: ANXIETY
  2. SAVELLA [Suspect]
     Indication: DEPRESSION

REACTIONS (5)
  - CARDIAC FAILURE CONGESTIVE [None]
  - HEART RATE INCREASED [None]
  - LABORATORY TEST ABNORMAL [None]
  - MALAISE [None]
  - RENAL FAILURE [None]
